FAERS Safety Report 15265424 (Version 1)
Quarter: 2018Q3

REPORT INFORMATION
  Report Type: Spontaneous
  Country: US (occurrence: US)
  Receive Date: 20180723
  Receipt Date: 20180723
  Transmission Date: 20181010
  Serious: Yes (Other)
  Sender: FDA-Public Use
  Company Number: None

PATIENT
  Age: 66 Year
  Sex: Female

DRUGS (5)
  1. VALSARTAN. [Suspect]
     Active Substance: VALSARTAN
     Indication: HYPERTENSION
     Route: 048
     Dates: start: 20160808, end: 20180716
  2. ATENOLOL. [Concomitant]
     Active Substance: ATENOLOL
     Dates: start: 20160808, end: 20171022
  3. ATORVASTATIN [Concomitant]
     Active Substance: ATORVASTATIN
     Dates: start: 20160808, end: 20180723
  4. METOPROLOL TARTRATE. [Concomitant]
     Active Substance: METOPROLOL TARTRATE
     Dates: start: 20171023, end: 20180723
  5. METAXALONE. [Concomitant]
     Active Substance: METAXALONE
     Dates: start: 20160927, end: 20161017

REACTIONS (1)
  - Invasive lobular breast carcinoma [None]

NARRATIVE: CASE EVENT DATE: 20171020
